FAERS Safety Report 16465190 (Version 1)
Quarter: 2019Q2

REPORT INFORMATION
  Report Type: Spontaneous
  Country: CA (occurrence: CA)
  Receive Date: 20190621
  Receipt Date: 20190621
  Transmission Date: 20190711
  Serious: Yes (Hospitalization, Disabling)
  Sender: FDA-Public Use
  Company Number: CA-TEVA-2019-CA-1065673

PATIENT
  Age: 61 Year
  Sex: Female
  Weight: 83.54 kg

DRUGS (16)
  1. RATIO-IRBESARTAN HCTZ [Concomitant]
  2. RESOTRAN FILM-COATED [Concomitant]
  3. RESTASIS [Concomitant]
     Active Substance: CYCLOSPORINE
  4. GABAPENTIN. [Suspect]
     Active Substance: GABAPENTIN
     Indication: FIBROMYALGIA
     Dosage: 900 MILLIGRAM DAILY;
     Route: 048
  5. ASPIRIN 81MG [Concomitant]
     Active Substance: ASPIRIN
  6. AMITRIPTYLINE [Concomitant]
     Active Substance: AMITRIPTYLINE
  7. TEMAZEPAM. [Concomitant]
     Active Substance: TEMAZEPAM
  8. CANNABIS OIL [Concomitant]
     Active Substance: CANNABIS SATIVA SEED OIL
  9. FLUOXETINE [Concomitant]
     Active Substance: FLUOXETINE HYDROCHLORIDE
  10. SOLIFENACIN [Concomitant]
     Active Substance: SOLIFENACIN
  11. VAGIFEM [Concomitant]
     Active Substance: ESTRADIOL
  12. NAPROXEN. [Concomitant]
     Active Substance: NAPROXEN
  13. PANTOPRAZOLE [Concomitant]
     Active Substance: PANTOPRAZOLE
  14. ZOPICLONE [Concomitant]
     Active Substance: ZOPICLONE
  15. GABAPENTIN. [Suspect]
     Active Substance: GABAPENTIN
     Indication: ABDOMINAL PAIN
     Dosage: 1200 MILLIGRAM DAILY;
     Route: 048
  16. CRESTOR [Concomitant]
     Active Substance: ROSUVASTATIN CALCIUM

REACTIONS (5)
  - Cognitive disorder [Recovering/Resolving]
  - Migraine [Recovering/Resolving]
  - Muscle twitching [Recovering/Resolving]
  - Dizziness [Recovering/Resolving]
  - Tremor [Recovering/Resolving]
